FAERS Safety Report 8608845-9 (Version None)
Quarter: 2012Q3

REPORT INFORMATION
  Report Type: 
  Country: None (occurrence: None)
  Receive Date: 20120821
  Receipt Date: 20120806
  Transmission Date: 20120928
  Serious: Yes (Other)
  Sender: FDA-Public Use
  Company Number: TR-ROCHE-1102996

PATIENT

DRUGS (1)
  1. ISOTRETINOIN [Suspect]
     Indication: ACNE
     Dosage: CUMULATIVE DOSE OF ISOTRETINOIN WAS LOWER THAN 120 MG/KG IN ALL PATIENTS

REACTIONS (2)
  - VISUAL ACUITY REDUCED [None]
  - MYOPIA [None]
